FAERS Safety Report 6843794-8 (Version None)
Quarter: 2010Q3

REPORT INFORMATION
  Report Type: 
  Country: None (occurrence: None)
  Receive Date: 20100715
  Receipt Date: 20100701
  Transmission Date: 20110219
  Serious: Yes (Disabling, Other)
  Sender: FDA-Public Use
  Company Number: PHHY2010PT43272

PATIENT
  Sex: Female

DRUGS (5)
  1. RASILEZ HCT [Suspect]
     Indication: HYPERTENSION
     Dosage: 1 PILL/DAY
     Route: 048
     Dates: start: 20100609, end: 20100616
  2. PRAVASTATIN [Interacting]
     Indication: HYPERCHOLESTEROLAEMIA
     Dosage: 1 PILL/DAY
     Route: 048
  3. ALPRAZOLAM [Interacting]
     Indication: ANXIETY
     Dosage: 1 MG/DAY
     Route: 048
  4. CARVEDILOL [Concomitant]
     Indication: HYPERTENSION
     Dosage: 2 PILLS/DAY
     Route: 048
  5. FLAVONOIDS [Concomitant]
     Dosage: 2 PILLS/DAY

REACTIONS (6)
  - DRUG INTERACTION [None]
  - DYSGEUSIA [None]
  - FOAMING AT MOUTH [None]
  - HEPATOTOXICITY [None]
  - NAUSEA [None]
  - VOMITING [None]
